FAERS Safety Report 21001623 (Version 2)
Quarter: 2022Q3

REPORT INFORMATION
  Report Type: Spontaneous
  Country: US (occurrence: US)
  Receive Date: 20220624
  Receipt Date: 20220708
  Transmission Date: 20221026
  Serious: Yes (Other)
  Sender: FDA-Public Use
  Company Number: US-TEVA-2022-US-2047624

PATIENT
  Age: 65 Year
  Sex: Female

DRUGS (5)
  1. CETIRIZINE [Suspect]
     Active Substance: CETIRIZINE HYDROCHLORIDE
     Indication: Rash
     Route: 065
  2. LORATADINE [Suspect]
     Active Substance: LORATADINE
     Indication: Rash
     Route: 065
  3. PREDNISONE [Suspect]
     Active Substance: PREDNISONE
     Indication: Dermatitis allergic
     Route: 065
  4. ZOTAROLIMUS [Suspect]
     Active Substance: ZOTAROLIMUS
     Indication: Coronary artery disease
     Dosage: TWO ZOTAROLIMUS ELUTING STENTS
     Route: 065
  5. MOMETASONE [Suspect]
     Active Substance: MOMETASONE
     Indication: Rash
     Route: 061

REACTIONS (4)
  - Dermatitis allergic [Recovered/Resolved]
  - Eosinophilia [Recovered/Resolved]
  - Rebound effect [Unknown]
  - Drug ineffective [Unknown]
